FAERS Safety Report 22362593 (Version 13)
Quarter: 2025Q1

REPORT INFORMATION
  Report Type: Report from Study
  Country: US (occurrence: US)
  Receive Date: 20230524
  Receipt Date: 20250324
  Transmission Date: 20250409
  Serious: Yes (Other)
  Sender: AMGEN
  Company Number: US-HORIZON THERAPEUTICS-HZN-2022-006160

PATIENT
  Age: 65 Year
  Sex: Male
  Weight: 94 kg

DRUGS (73)
  1. TEPEZZA [Suspect]
     Active Substance: TEPROTUMUMAB-TRBW
     Indication: Endocrine ophthalmopathy
     Route: 042
     Dates: start: 20220624
  2. TEPEZZA [Suspect]
     Active Substance: TEPROTUMUMAB-TRBW
     Indication: Graves^ disease
     Route: 042
     Dates: start: 20220715
  3. TEPEZZA [Suspect]
     Active Substance: TEPROTUMUMAB-TRBW
     Route: 042
     Dates: start: 20220805
  4. TEPEZZA [Suspect]
     Active Substance: TEPROTUMUMAB-TRBW
     Route: 042
     Dates: start: 20220826
  5. TEPEZZA [Suspect]
     Active Substance: TEPROTUMUMAB-TRBW
     Route: 042
     Dates: start: 2022
  6. TEPEZZA [Suspect]
     Active Substance: TEPROTUMUMAB-TRBW
     Route: 040
     Dates: start: 20220916
  7. CRESTOR [Concomitant]
     Active Substance: ROSUVASTATIN CALCIUM
     Dosage: 10 MILLIGRAM, QD
     Route: 048
     Dates: start: 20190129
  8. CRESTOR [Concomitant]
     Active Substance: ROSUVASTATIN CALCIUM
     Dosage: 10 MILLIGRAM, QD
     Route: 048
     Dates: start: 20220711
  9. CRESTOR [Concomitant]
     Active Substance: ROSUVASTATIN CALCIUM
     Dosage: 10 MILLIGRAM, QD
     Route: 048
     Dates: start: 20230421
  10. CRESTOR [Concomitant]
     Active Substance: ROSUVASTATIN CALCIUM
     Dosage: 10 MILLIGRAM, QD
     Route: 048
     Dates: start: 20230718
  11. AMLODIPINE [Concomitant]
     Active Substance: AMLODIPINE BESYLATE
     Dosage: 2.5 MILLIGRAM, QD
     Route: 048
     Dates: start: 20190723
  12. AMLODIPINE [Concomitant]
     Active Substance: AMLODIPINE BESYLATE
     Dosage: 2.5 MILLIGRAM, QD
     Route: 048
     Dates: start: 20220607
  13. AMLODIPINE [Concomitant]
     Active Substance: AMLODIPINE BESYLATE
     Dosage: 2.5 MILLIGRAM, QD
     Route: 048
     Dates: start: 20230223
  14. AMLODIPINE [Concomitant]
     Active Substance: AMLODIPINE BESYLATE
     Dosage: 2.5 MILLIGRAM, QD
     Route: 048
     Dates: start: 20240208
  15. METHIMAZOLE [Concomitant]
     Active Substance: METHIMAZOLE
     Dosage: 2.5 MILLIGRAM, QD
     Route: 048
     Dates: start: 202203
  16. METHIMAZOLE [Concomitant]
     Active Substance: METHIMAZOLE
     Dosage: 5 MILLIGRAM, QD
     Route: 048
     Dates: start: 20220730
  17. METHIMAZOLE [Concomitant]
     Active Substance: METHIMAZOLE
     Dosage: 5 MILLIGRAM, QD
     Route: 048
     Dates: start: 20220919
  18. METHIMAZOLE [Concomitant]
     Active Substance: METHIMAZOLE
     Dosage: 0.5 MILLIGRAM, QD
     Route: 048
     Dates: start: 20220926
  19. METHIMAZOLE [Concomitant]
     Active Substance: METHIMAZOLE
     Dosage: 5 MILLIGRAM, QD
     Route: 048
     Dates: start: 20230524
  20. METHIMAZOLE [Concomitant]
     Active Substance: METHIMAZOLE
     Dosage: 5 MILLIGRAM, QD
     Route: 048
     Dates: start: 20231120
  21. METHIMAZOLE [Concomitant]
     Active Substance: METHIMAZOLE
     Dosage: 5 MILLIGRAM, QD
     Route: 048
     Dates: start: 20240410
  22. VALSARTAN [Concomitant]
     Active Substance: VALSARTAN
     Dosage: 160 MILLIGRAM, QD
     Route: 048
     Dates: start: 20220110
  23. VALSARTAN [Concomitant]
     Active Substance: VALSARTAN
     Dosage: 160 MILLIGRAM, QD
     Route: 048
     Dates: start: 20220123
  24. VALSARTAN [Concomitant]
     Active Substance: VALSARTAN
     Dosage: 160 MILLIGRAM, QD
     Route: 048
     Dates: start: 20230201
  25. VALSARTAN [Concomitant]
     Active Substance: VALSARTAN
     Dosage: 160 MILLIGRAM, QD
     Route: 048
     Dates: start: 20240123
  26. CIPRO [Concomitant]
     Active Substance: CIPROFLOXACIN HYDROCHLORIDE
     Dosage: 500 MILLIGRAM, BID
     Route: 048
     Dates: start: 20220919
  27. DEXTROSE [Concomitant]
     Active Substance: DEXTROSE MONOHYDRATE
     Indication: Hypoglycaemia
     Route: 048
     Dates: start: 20220919
  28. MUPIROCIN [Concomitant]
     Active Substance: MUPIROCIN
     Dosage: UNK, BID SMALL AMOUNT TO THE AFFECTED AREA
     Route: 061
     Dates: start: 20220919
  29. TRULICITY [Concomitant]
     Active Substance: DULAGLUTIDE
     Dosage: 1.5 MILLIGRAM, QWK, (1.5 MG/0.5 ML)
     Route: 058
     Dates: start: 20220919, end: 20240710
  30. TRULICITY [Concomitant]
     Active Substance: DULAGLUTIDE
     Dosage: 1.5 MILLIGRAM, QWK, (1.5 MG/0.5 ML)
     Route: 058
     Dates: start: 20221020, end: 20240710
  31. TRULICITY [Concomitant]
     Active Substance: DULAGLUTIDE
     Dosage: 1.5 MILLIGRAM, QWK, (1.5 MG/0.5 ML)
     Route: 058
     Dates: start: 20230420, end: 20240710
  32. TRULICITY [Concomitant]
     Active Substance: DULAGLUTIDE
     Dosage: 0.75 MILLIGRAM, QWK, (0.75 MG/0.5 ML)
     Route: 058
     Dates: start: 20231220, end: 20240710
  33. TRULICITY [Concomitant]
     Active Substance: DULAGLUTIDE
     Dosage: 0.75 MILLIGRAM, QWK, (0.75 MG/0.5 ML)
     Route: 058
     Dates: start: 20240411
  34. VITAMIN D3 [Concomitant]
     Active Substance: CHOLECALCIFEROL
     Dosage: 125 MICROGRAM, QD
     Route: 048
     Dates: start: 20240123
  35. OZEMPIC [Concomitant]
     Active Substance: SEMAGLUTIDE
     Dosage: 0.25 MILLIGRAM, QWK (0.25/0.5 MILLIGRAM)
     Route: 058
     Dates: start: 20240408
  36. OZEMPIC [Concomitant]
     Active Substance: SEMAGLUTIDE
     Dosage: 1 MILLIGRAM, QWK (4 MILLIGRAM/3 MILLILITRE)
     Route: 058
  37. ZOFRAN [Concomitant]
     Active Substance: ONDANSETRON HYDROCHLORIDE
  38. TYLENOL [Concomitant]
     Active Substance: ACETAMINOPHEN
     Route: 048
  39. ROXICODONE [Concomitant]
     Active Substance: OXYCODONE HYDROCHLORIDE
  40. COZAAR [Concomitant]
     Active Substance: LOSARTAN POTASSIUM
  41. BAYER ASPIRIN [Concomitant]
     Active Substance: ASPIRIN
  42. SUBLIMAZE [Concomitant]
     Active Substance: FENTANYL CITRATE
  43. XYLOCAINE [Concomitant]
     Active Substance: LIDOCAINE HYDROCHLORIDE
  44. DIPRIVAN [Concomitant]
     Active Substance: PROPOFOL
     Route: 042
  45. AMLODIPINE BESYLATE [Concomitant]
     Active Substance: AMLODIPINE BESYLATE
     Dosage: 2.5 MILLIGRAM, QD
     Route: 048
     Dates: start: 20240208
  46. SELENIUM [Concomitant]
     Active Substance: SELENIUM
     Dosage: 0.4 MILLIGRAM, Q30MIN
     Route: 048
     Dates: start: 20230303
  47. LIDOCAINE [Concomitant]
     Active Substance: LIDOCAINE
     Route: 065
  48. MODERNA COVID-19 VACCINE [Concomitant]
     Active Substance: ELASOMERAN
     Route: 065
     Dates: start: 20210321
  49. MODERNA COVID-19 VACCINE [Concomitant]
     Active Substance: ELASOMERAN
     Route: 065
     Dates: start: 20211102
  50. MODERNA COVID-19 VACCINE [Concomitant]
     Active Substance: ELASOMERAN
     Route: 065
     Dates: start: 20221006
  51. MODERNA COVID-19 VACCINE [Concomitant]
     Active Substance: ELASOMERAN
     Route: 065
     Dates: start: 20220427
  52. MODERNA COVID-19 VACCINE [Concomitant]
     Active Substance: ELASOMERAN
     Route: 065
     Dates: start: 20231101
  53. LOSARTAN [Concomitant]
     Active Substance: LOSARTAN
     Dosage: 100 MILLIGRAM, QD
     Route: 048
     Dates: start: 20190401
  54. TRIAMCINOLONE ACETONIDE [Concomitant]
     Active Substance: TRIAMCINOLONE ACETONIDE
     Dosage: UNK UNK, BID
     Route: 061
     Dates: start: 20191112
  55. INFLUENZA VIRUS VACCINE [Concomitant]
     Active Substance: INFLUENZA VIRUS VACCINE
     Route: 065
     Dates: start: 20120623
  56. INFLUENZA VIRUS VACCINE [Concomitant]
     Active Substance: INFLUENZA VIRUS VACCINE
     Route: 065
     Dates: start: 20171214
  57. INFLUENZA VIRUS VACCINE [Concomitant]
     Active Substance: INFLUENZA VIRUS VACCINE
     Route: 065
     Dates: start: 20191219
  58. INFLUENZA VIRUS VACCINE [Concomitant]
     Active Substance: INFLUENZA VIRUS VACCINE
     Route: 065
     Dates: start: 20191112
  59. INFLUENZA VIRUS VACCINE [Concomitant]
     Active Substance: INFLUENZA VIRUS VACCINE
     Route: 065
     Dates: start: 20200820
  60. INFLUENZA VIRUS VACCINE [Concomitant]
     Active Substance: INFLUENZA VIRUS VACCINE
     Route: 065
     Dates: start: 20211010
  61. INFLUENZA VIRUS VACCINE [Concomitant]
     Active Substance: INFLUENZA VIRUS VACCINE
     Route: 065
     Dates: start: 20211029
  62. Pneumococcal polysaccharide conjugate vaccine (20-valent, adsorbed) [Concomitant]
     Route: 065
     Dates: start: 20220630
  63. TETANUS TOXOID, REDUCED DIPHTHERIA TOXOID AND ACELLULAR PERTUSSIS VACC [Concomitant]
     Active Substance: TETANUS TOXOID, REDUCED DIPHTHERIA TOXOID AND ACELLULAR PERTUSSIS VACCINE ADSORBED, TDAP
     Route: 065
     Dates: start: 20130413
  64. TETANUS TOXOID, REDUCED DIPHTHERIA TOXOID AND ACELLULAR PERTUSSIS VACC [Concomitant]
     Active Substance: TETANUS TOXOID, REDUCED DIPHTHERIA TOXOID AND ACELLULAR PERTUSSIS VACCINE ADSORBED, TDAP
     Route: 065
     Dates: start: 20230505
  65. Zoster [Concomitant]
  66. TAMSULOSIN [Concomitant]
     Active Substance: TAMSULOSIN
     Dosage: 0.4 MILLIGRAM, QD
     Route: 048
     Dates: start: 20230302
  67. XARELTO [Concomitant]
     Active Substance: RIVAROXABAN
     Route: 065
  68. PFIZER-BIONTECH COVID-19 VACCINE [Concomitant]
     Active Substance: TOZINAMERAN
     Route: 065
     Dates: start: 20221006
  69. ROSUVASTATIN CALCIUM [Concomitant]
     Active Substance: ROSUVASTATIN CALCIUM
     Dosage: 10 MILLIGRAM, QD
     Route: 048
     Dates: start: 20230718
  70. VITAMIN B12 [Concomitant]
     Active Substance: CYANOCOBALAMIN
  71. CLONAZEPAM [Concomitant]
     Active Substance: CLONAZEPAM
     Indication: Anxiety
     Dosage: 0.5 MILLIGRAM, BID
     Route: 048
     Dates: start: 20240708
  72. MOUNJARO [Concomitant]
     Active Substance: TIRZEPATIDE
     Dosage: 7.5 MILLIGRAM, QWK (7.5 MILLIGRAM/0.5 MILLILITRE)
  73. DOXEPIN [Concomitant]
     Active Substance: DOXEPIN
     Dosage: 6 MILLIGRAM, QD (TAKE 1/2 TO 2 TABLETS BY MOUTH NIGHTLY ON AN EMPTY STOMACH 30 MINUTE BEFORE BEDTIME
     Route: 048

REACTIONS (56)
  - Deafness neurosensory [Not Recovered/Not Resolved]
  - Graves^ disease [Not Recovered/Not Resolved]
  - Haematochezia [Unknown]
  - Endocrine ophthalmopathy [Not Recovered/Not Resolved]
  - Dyspnoea [Unknown]
  - Anxiety [Not Recovered/Not Resolved]
  - Emotional distress [Not Recovered/Not Resolved]
  - Abdominal pain [Recovered/Resolved]
  - Localised infection [Unknown]
  - Bradycardia [Unknown]
  - Strabismus [Not Recovered/Not Resolved]
  - Myalgia [Unknown]
  - Muscle tightness [Not Recovered/Not Resolved]
  - Periarthritis [Unknown]
  - Hepatic steatosis [Unknown]
  - White blood cell count decreased [Unknown]
  - Haemoglobin decreased [Unknown]
  - Mean cell volume decreased [Unknown]
  - Carbon dioxide increased [Unknown]
  - Varicose vein [Not Recovered/Not Resolved]
  - Dizziness [Unknown]
  - Blood urea increased [Unknown]
  - Eosinophil count increased [Unknown]
  - Hiatus hernia [Unknown]
  - Dyspnoea exertional [Unknown]
  - Glomerular filtration rate decreased [Unknown]
  - Blood triglycerides increased [Unknown]
  - Blood albumin increased [Unknown]
  - Diaphragmatic hernia [Unknown]
  - Platelet count decreased [Unknown]
  - Aortic dilatation [Unknown]
  - Hordeolum [Recovering/Resolving]
  - Osteoarthritis [Unknown]
  - Tri-iodothyronine free increased [Unknown]
  - Haematocrit decreased [Unknown]
  - Hyperkeratosis [Unknown]
  - Abscess limb [Unknown]
  - Paronychia [Unknown]
  - Type V hyperlipidaemia [Unknown]
  - Benign gastrointestinal neoplasm [Unknown]
  - Varicose vein [Unknown]
  - Anaemia [Unknown]
  - Blood urine present [Unknown]
  - Tendon disorder [Unknown]
  - Anti-thyroid antibody increased [Unknown]
  - Weight increased [Unknown]
  - Thyroid stimulating immunoglobulin increased [Unknown]
  - Ingrowing nail [Unknown]
  - Weight decreased [Unknown]
  - Asthenia [Unknown]
  - Alopecia [Unknown]
  - Tinnitus [Not Recovered/Not Resolved]
  - Muscle spasms [Unknown]
  - Fatigue [Unknown]
  - Hyperglycaemia [Unknown]
  - Therapeutic product effect incomplete [Unknown]

NARRATIVE: CASE EVENT DATE: 20220101
